FAERS Safety Report 8516951-2 (Version None)
Quarter: 2012Q3

REPORT INFORMATION
  Report Type: 
  Country: None (occurrence: None)
  Receive Date: 20120718
  Receipt Date: 20120713
  Transmission Date: 20120928
  Serious: Yes (Hospitalization, Other)
  Sender: FDA-Public Use
  Company Number: DE-ELI_LILLY_AND_COMPANY-DE201207004442

PATIENT
  Sex: Female

DRUGS (4)
  1. FORTEO [Suspect]
     Indication: OSTEOPOROSIS
     Dosage: UNK
     Route: 058
     Dates: start: 20110303
  2. IBUPROFEN [Concomitant]
  3. CALCIUM [Concomitant]
  4. VITAMIN D [Concomitant]

REACTIONS (9)
  - DYSPNOEA [None]
  - LUNG DISORDER [None]
  - HAEMATOMA [None]
  - WRIST FRACTURE [None]
  - INCONTINENCE [None]
  - FALL [None]
  - HYPOTENSION [None]
  - FATIGUE [None]
  - ARRHYTHMIA [None]
